FAERS Safety Report 5533036-8 (Version None)
Quarter: 2007Q4

REPORT INFORMATION
  Report Type: 
  Country: None (occurrence: None)
  Receive Date: 20071204
  Receipt Date: 20071128
  Transmission Date: 20080405
  Serious: Yes (Death, Hospitalization, Other)
  Sender: FDA-Public Use
  Company Number: JP-ELI_LILLY_AND_COMPANY-JP200711006456

PATIENT
  Sex: Male
  Weight: 54 kg

DRUGS (4)
  1. PEMETREXED [Suspect]
     Indication: PLEURAL MESOTHELIOMA MALIGNANT
     Dosage: UNK, OTHER
     Route: 042
     Dates: start: 20070927, end: 20071112
  2. CISPLATIN [Suspect]
     Indication: PLEURAL MESOTHELIOMA MALIGNANT
     Dosage: UNK, OTHER
     Route: 042
     Dates: start: 20070927, end: 20071112
  3. FOLIC ACID [Concomitant]
     Indication: PREMEDICATION
  4. VITAMIN B-12 [Concomitant]
     Indication: PREMEDICATION

REACTIONS (3)
  - ASPHYXIA [None]
  - PNEUMONIA BACTERIAL [None]
  - SPUTUM RETENTION [None]
